FAERS Safety Report 9495362 (Version 3)
Quarter: 2013Q4

REPORT INFORMATION
  Report Type: Spontaneous
  Country: JP (occurrence: JP)
  Receive Date: 20130903
  Receipt Date: 20131025
  Transmission Date: 20140711
  Serious: Yes (Hospitalization)
  Sender: FDA-Public Use
  Company Number: JP-GLAXOSMITHKLINE-B0918092A

PATIENT
  Age: 65 Year
  Sex: Male

DRUGS (4)
  1. LAMICTAL [Suspect]
     Indication: BIPOLAR DISORDER
     Dosage: 25MG PER DAY
     Route: 048
     Dates: start: 20130725, end: 20130807
  2. LAMICTAL [Suspect]
     Indication: BIPOLAR DISORDER
     Dosage: 25MG TWICE PER DAY
     Route: 048
     Dates: start: 20130808, end: 20130812
  3. LIMAS [Concomitant]
     Indication: BIPOLAR DISORDER
     Dosage: 200MG FOUR TIMES PER DAY
     Route: 048
     Dates: start: 20130713, end: 20130821
  4. ROHYPNOL [Concomitant]
     Indication: BIPOLAR DISORDER
     Route: 065

REACTIONS (7)
  - Cholestasis [Recovered/Resolved]
  - Jaundice cholestatic [Unknown]
  - Ocular icterus [Unknown]
  - Faeces pale [Unknown]
  - Drug eruption [Recovered/Resolved]
  - Rash [Unknown]
  - Decreased appetite [Unknown]
